FAERS Safety Report 6411518-4 (Version None)
Quarter: 2009Q4

REPORT INFORMATION
  Report Type: 
  Country: None (occurrence: None)
  Receive Date: 20091020
  Receipt Date: 20091005
  Transmission Date: 20100525
  Serious: Yes (Other)
  Sender: FDA-Public Use
  Company Number: 2009-3827

PATIENT
  Age: 81 Year
  Sex: Female
  Weight: 73.9 kg

DRUGS (2)
  1. APOKYN [Suspect]
     Indication: PARKINSON'S DISEASE
     Dosage: 0.8 ML (0.2 ML, 4 IN 1 D), SUBCUTANEOUS
     Route: 058
  2. TIGAN (TRIMETHOBENZAMIDE HYDROCHLORIDE) (TRIMETHOBENZAMIDE HYDROCHLORI [Concomitant]

REACTIONS (9)
  - ANXIETY [None]
  - CONDITION AGGRAVATED [None]
  - FATIGUE [None]
  - FEELING ABNORMAL [None]
  - HEADACHE [None]
  - NAUSEA [None]
  - PHARYNGEAL OEDEMA [None]
  - SKIN TIGHTNESS [None]
  - SOMNOLENCE [None]
